FAERS Safety Report 8646867 (Version 2)
Quarter: 2012Q4

REPORT INFORMATION
  Report Type: 
  Country: US (occurrence: US)
  Receive Date: 20120703
  Receipt Date: 20121030
  Transmission Date: 20130627
  Serious: Yes (Hospitalization, Other)
  Sender: FDA-Public Use
  Company Number: US-BAYER-2012-064341

PATIENT
  Age: 37 Year
  Sex: Female

DRUGS (11)
  1. YAZ [Suspect]
     Indication: HEAVY PERIODS
     Dosage: UNK
     Dates: start: 20070301, end: 200709
  2. YAZ [Suspect]
     Indication: POLYCYSTIC OVARIAN SYNDROME
     Dosage: UNK
     Dates: start: 20080705, end: 200908
  3. METFORMIN [Concomitant]
     Dosage: 500 mg, TID
     Route: 048
  4. METFORMIN [Concomitant]
     Dosage: 500 mg, TID
     Route: 048
  5. ALPRAZOLAM [Concomitant]
     Dosage: 0.25 mg, TID
     Route: 048
  6. CELEXA [Concomitant]
     Dosage: 60 mg, 1.5 tablets
     Route: 048
  7. CLOBETASOL [Concomitant]
     Dosage: UNK
     Route: 061
  8. FERROUS SULFATE [Concomitant]
     Dosage: 325 mg, BID
  9. MULTIVITAMIN [Concomitant]
     Dosage: 1 tablet
     Route: 048
  10. BUDEPRION [Concomitant]
     Dosage: 300 mg, UNK
  11. OXYCODONE/APAP [Concomitant]
     Dosage: 5mg- 325 mg

REACTIONS (7)
  - Gallbladder injury [None]
  - Pancreatitis [None]
  - Liver disorder [None]
  - Cholecystitis chronic [None]
  - Injury [None]
  - Pain [None]
  - Abdominal pain upper [None]
